FAERS Safety Report 6169445-6 (Version None)
Quarter: 2009Q2

REPORT INFORMATION
  Report Type: 
  Country: None (occurrence: None)
  Receive Date: 20090428
  Receipt Date: 20090416
  Transmission Date: 20091009
  Serious: Yes (Other)
  Sender: FDA-Public Use
  Company Number: PHHY2009CH11546

PATIENT
  Sex: Female

DRUGS (4)
  1. RITALIN [Suspect]
     Dosage: 80 MG/DAY
  2. RITALIN [Suspect]
     Dosage: 60 MG/DAY
  3. CITALOPRAM [Concomitant]
     Dosage: UNK
  4. LITHIOFOR [Concomitant]
     Dosage: 990 MG/DAY

REACTIONS (3)
  - CONTUSION [None]
  - ECCHYMOSIS [None]
  - THROMBOCYTOPENIA [None]
